FAERS Safety Report 10035613 (Version 3)
Quarter: 2014Q2

REPORT INFORMATION
  Report Type: Spontaneous
  Country: JP (occurrence: JP)
  Receive Date: 20140325
  Receipt Date: 20140414
  Transmission Date: 20141212
  Serious: Yes (Hospitalization, Other)
  Sender: FDA-Public Use
  Company Number: JP-B.I. PHARMACEUTICALS,INC./RIDGEFIELD-2014-BI-05227NB

PATIENT
  Age: 74 Year
  Sex: Female
  Weight: 65 kg

DRUGS (5)
  1. MICAMLO COMBINATION [Suspect]
     Indication: BLOOD PRESSURE MANAGEMENT
     Dosage: DAILY DOSE: 1 DF
     Route: 048
     Dates: start: 20140117, end: 20140130
  2. ZYPREXA / OLANZAPINE [Concomitant]
     Dosage: 7.5 MG
     Route: 048
  3. LIMAS / LITHIUM CARBONATE [Concomitant]
     Indication: MANIA
     Dosage: 500 MG
     Route: 048
  4. RIVOTRIL / CLONAZEPAM [Concomitant]
     Dosage: 0.5 MG
     Route: 048
  5. COMELIAN / DILAZEP HYDROCHLORIDE HYDRATE [Concomitant]
     Dosage: 2 DF
     Route: 065

REACTIONS (6)
  - Hepatic function abnormal [Not Recovered/Not Resolved]
  - Renal impairment [Not Recovered/Not Resolved]
  - Sick sinus syndrome [Recovered/Resolved]
  - Dyspnoea exertional [Recovered/Resolved]
  - Face oedema [Recovered/Resolved]
  - Oedema peripheral [Recovered/Resolved]
